FAERS Safety Report 6998139-X (Version None)
Quarter: 2010Q3

REPORT INFORMATION
  Report Type: 
  Country: None (occurrence: None)
  Receive Date: 20100920
  Receipt Date: 20091015
  Transmission Date: 20110219
  Serious: No
  Sender: FDA-Public Use
  Company Number: US-ASTRAZENECA-2009UW14106

PATIENT
  Age: 13192 Day
  Sex: Male
  Weight: 108.9 kg

DRUGS (7)
  1. SEROQUEL [Suspect]
     Indication: SCHIZOPHRENIA
     Route: 048
     Dates: start: 20010101, end: 20060101
  2. GEODON [Concomitant]
     Dates: start: 20010101
  3. HALDOL [Concomitant]
     Dates: start: 20010101
  4. RISPERDAL [Concomitant]
     Dates: start: 20080101
  5. STELAZINE [Concomitant]
  6. ZYPREXA [Concomitant]
     Dates: start: 20010101
  7. PROZAC [Concomitant]
     Dates: start: 19930101, end: 20000101

REACTIONS (2)
  - TOOTH INFECTION [None]
  - TYPE 2 DIABETES MELLITUS [None]
